FAERS Safety Report 20332092 (Version 1)
Quarter: 2022Q1

REPORT INFORMATION
  Report Type: Spontaneous
  Country: US (occurrence: None)
  Receive Date: 20220113
  Receipt Date: 20220113
  Transmission Date: 20220423
  Serious: No
  Sender: FDA-Public Use
  Company Number: None

PATIENT
  Sex: Female

DRUGS (1)
  1. HUMIRA [Suspect]
     Active Substance: ADALIMUMAB
     Indication: Polyarthritis
     Dosage: 40MG/0.4ML  EVERY 2 WEEKS UNDER THE  SKIN? ?
     Route: 058

REACTIONS (2)
  - Condition aggravated [None]
  - Rheumatoid arthritis [None]
